FAERS Safety Report 17974651 (Version 1)
Quarter: 2020Q3

REPORT INFORMATION
  Report Type: Spontaneous
  Country: US (occurrence: US)
  Receive Date: 20200702
  Receipt Date: 20200702
  Transmission Date: 20201103
  Serious: Yes (Other)
  Sender: FDA-Public Use
  Company Number: US-AGIOS-2006US02012

PATIENT

DRUGS (1)
  1. TIBSOVO [Suspect]
     Active Substance: IVOSIDENIB
     Indication: ACUTE MYELOID LEUKAEMIA
     Dosage: HAD BEEN ON 8 CYCLES

REACTIONS (2)
  - Central nervous system leukaemia [Unknown]
  - Acute myeloid leukaemia [Unknown]
